FAERS Safety Report 13715303 (Version 2)
Quarter: 2017Q3

REPORT INFORMATION
  Report Type: Report from Study
  Country: DE (occurrence: DE)
  Receive Date: 20170704
  Receipt Date: 20170717
  Transmission Date: 20171127
  Serious: Yes (Hospitalization, Other)
  Sender: FDA-Public Use
  Company Number: DE-BRISTOL-MYERS SQUIBB COMPANY-BMS-2017-058058

PATIENT
  Age: 77 Year
  Sex: Male

DRUGS (1)
  1. APIXABAN [Suspect]
     Active Substance: APIXABAN
     Indication: CEREBROVASCULAR ACCIDENT PROPHYLAXIS
     Dosage: 5 MG, BID
     Route: 048

REACTIONS (6)
  - Fatigue [Not Recovered/Not Resolved]
  - Biopsy [Recovered/Resolved]
  - Pain in extremity [Not Recovered/Not Resolved]
  - Tumour excision [Recovered/Resolved]
  - Pyrexia [Unknown]
  - Lung neoplasm [Unknown]

NARRATIVE: CASE EVENT DATE: 20160831
